FAERS Safety Report 8544440 (Version 4)
Quarter: 2012Q4

REPORT INFORMATION
  Report Type: Report from Study
  Country: US (occurrence: US)
  Receive Date: 20120503
  Receipt Date: 20121102
  Transmission Date: 20130627
  Serious: Yes (Hospitalization)
  Sender: FDA-Public Use
  Company Number: US-PFIZER INC-2012104997

PATIENT
  Age: 79 Year
  Sex: Male
  Weight: 68.3 kg

DRUGS (10)
  1. DOXORUBICIN HCL [Suspect]
     Indication: SOFT TISSUE NEOPLASM
     Dosage: 134 mg, UNK
     Dates: start: 20120403, end: 20120403
  2. ATIVAN [Concomitant]
  3. DOXAZOSIN [Concomitant]
  4. FINASTERIDE [Concomitant]
  5. TEMAZEPAM [Concomitant]
  6. ACETYLSALICYLIC ACID [Concomitant]
  7. ZANTAC [Concomitant]
  8. TYLENOL [Concomitant]
  9. MUCINEX [Concomitant]
  10. NEULASTA [Concomitant]
     Dosage: UNK
     Dates: start: 20120403

REACTIONS (1)
  - Neutropenic sepsis [Recovered/Resolved]
